FAERS Safety Report 19125805 (Version 1)
Quarter: 2021Q2

REPORT INFORMATION
  Report Type: Spontaneous
  Country: US (occurrence: US)
  Receive Date: 20210412
  Receipt Date: 20210412
  Transmission Date: 20210717
  Serious: No
  Sender: FDA-Public Use
  Company Number: US-INTRA-CELLULAR THERAPIES, INC.-2021ICT00085

PATIENT
  Sex: Male

DRUGS (2)
  1. CAPLYTA [Suspect]
     Active Substance: LUMATEPERONE
     Dosage: UNK
  2. CAPLYTA [Suspect]
     Active Substance: LUMATEPERONE
     Dosage: UNK

REACTIONS (1)
  - Diarrhoea [Unknown]
